FAERS Safety Report 15414028 (Version 5)
Quarter: 2020Q1

REPORT INFORMATION
  Report Type: Spontaneous
  Country: US (occurrence: US)
  Receive Date: 20180921
  Receipt Date: 20200217
  Transmission Date: 20200409
  Serious: Yes (Other)
  Sender: FDA-Public Use
  Company Number: US-SAKK-2018SA261273AA

PATIENT
  Age: 69 Year
  Sex: Male

DRUGS (2)
  1. PRALUENT [Suspect]
     Active Substance: ALIROCUMAB
     Dosage: 150 MG, OTHER
     Route: 058
     Dates: start: 201605
  2. PRALUENT [Suspect]
     Active Substance: ALIROCUMAB
     Dosage: 150 MG, OTHER
     Route: 058
     Dates: start: 201809

REACTIONS (3)
  - Cognitive disorder [Unknown]
  - Product dose omission [Unknown]
  - Dementia [Unknown]

NARRATIVE: CASE EVENT DATE: 20200207
